FAERS Safety Report 11704138 (Version 1)
Quarter: 2015Q4

REPORT INFORMATION
  Report Type: Spontaneous
  Country: US (occurrence: US)
  Receive Date: 20151106
  Receipt Date: 20151106
  Transmission Date: 20160304
  Serious: Yes (Other)
  Sender: FDA-Public Use
  Company Number: US-CIPLA LTD.-2015US08364

PATIENT

DRUGS (7)
  1. NEURONTIN [Suspect]
     Active Substance: GABAPENTIN
     Indication: PNEUMONIA
     Dosage: 1800 MG TOTAL; 900 MG IN THE MORNING  AND 900 MG AT NIGHT.
     Route: 065
     Dates: start: 2013
  2. TOPIRAMATE. [Suspect]
     Active Substance: TOPIRAMATE
     Indication: MIGRAINE
  3. LYRICA [Suspect]
     Active Substance: PREGABALIN
     Indication: FIBROMYALGIA
     Dosage: 1CAPSULE BY MOUTH TWICE A DAY, 150 MG
     Route: 065
  4. TOPIRAMATE. [Suspect]
     Active Substance: TOPIRAMATE
     Indication: AFFECTIVE DISORDER
     Dosage: 150 MG TWICE A DAY BY MOUTH
     Route: 065
  5. LYRICA [Suspect]
     Active Substance: PREGABALIN
     Indication: NEURALGIA
  6. LITHIUM. [Suspect]
     Active Substance: LITHIUM
     Route: 065
  7. GENERIC LASIX [Suspect]
     Active Substance: FUROSEMIDE
     Dosage: AS NECESSARY
     Route: 065

REACTIONS (5)
  - Memory impairment [None]
  - Vision blurred [None]
  - Dry mouth [None]
  - Pneumonia [Recovered/Resolved]
  - Burning sensation [None]

NARRATIVE: CASE EVENT DATE: 2010
